FAERS Safety Report 14304460 (Version 1)
Quarter: 2017Q4

REPORT INFORMATION
  Report Type: Report from Study
  Country: JP (occurrence: JP)
  Receive Date: 20171219
  Receipt Date: 20171219
  Transmission Date: 20180321
  Serious: Yes (Other)
  Sender: FDA-Public Use
  Company Number: JP-OTSUKA-003063

PATIENT
  Age: 67 Year
  Sex: Male

DRUGS (13)
  1. NOVOLIN 30R [Concomitant]
     Active Substance: INSULIN HUMAN
     Dosage: 40 IU, QD
     Route: 058
     Dates: start: 20080529
  2. ARIPIPRAZOLE. [Suspect]
     Active Substance: ARIPIPRAZOLE
     Dosage: 12 MG, QD
     Route: 048
     Dates: start: 20071004, end: 20080116
  3. TOLEDOMIN [Concomitant]
     Active Substance: MILNACIPRAN HYDROCHLORIDE
     Indication: SCHIZOPHRENIA
     Dosage: 50 MG, DAILY DOSE
     Route: 048
     Dates: start: 20080316, end: 20081008
  4. NOVOLIN 30R [Concomitant]
     Active Substance: INSULIN HUMAN
     Dosage: 22 IU, QD
     Route: 058
     Dates: start: 20080421, end: 20080528
  5. PAROXETINE. [Concomitant]
     Active Substance: PAROXETINE
     Dosage: FORMULATION-TABLET
     Dates: start: 20070418, end: 20081008
  6. NOVOLIN 30R [Concomitant]
     Active Substance: INSULIN HUMAN
     Dosage: 16 IU, QD
     Route: 058
     Dates: start: 20080107, end: 20080420
  7. PAXIL [Concomitant]
     Active Substance: PAROXETINE HYDROCHLORIDE
     Indication: SCHIZOPHRENIA
     Dosage: 10 MG, QD
     Route: 048
     Dates: start: 20070418, end: 20081008
  8. NOVOLIN 30R [Concomitant]
     Active Substance: INSULIN HUMAN
     Indication: DIABETES MELLITUS
     Dosage: 8 IU, QD
     Route: 058
     Dates: start: 20070830, end: 20080106
  9. LEVOMEPROMAZINE [Concomitant]
     Active Substance: LEVOMEPROMAZINE
     Dosage: CONTINUING
     Dates: start: 20070910, end: 20080227
  10. ARIPIPRAZOLE. [Suspect]
     Active Substance: ARIPIPRAZOLE
     Dosage: 12 MG, QD
     Route: 048
     Dates: start: 20081009
  11. LEVOTOMIN [Concomitant]
     Active Substance: LEVOMEPROMAZINE
     Indication: SCHIZOPHRENIA
     Dosage: 30 MG, QD
     Route: 048
     Dates: start: 20070910, end: 20080227
  12. ARIPIPRAZOLE. [Suspect]
     Active Substance: ARIPIPRAZOLE
     Dosage: 18 MG, QD
     Route: 048
     Dates: start: 20080117, end: 20081008
  13. ARIPIPRAZOLE. [Suspect]
     Active Substance: ARIPIPRAZOLE
     Indication: SCHIZOPHRENIA
     Dosage: 6 MG, QD
     Route: 048
     Dates: start: 20071001, end: 20071003

REACTIONS (1)
  - Blood glucose increased [Recovering/Resolving]

NARRATIVE: CASE EVENT DATE: 20080207
